FAERS Safety Report 24917187 (Version 1)
Quarter: 2025Q1

REPORT INFORMATION
  Report Type: Spontaneous
  Country: US (occurrence: None)
  Receive Date: 20250201
  Receipt Date: 20250201
  Transmission Date: 20250409
  Serious: Yes (Hospitalization)
  Sender: FDA-CTU
  Company Number: None

PATIENT
  Sex: Female
  Weight: 108.41 kg

DRUGS (3)
  1. WINREVAIR [Suspect]
     Active Substance: SOTATERCEPT-CSRK
     Indication: Pulmonary arterial hypertension
     Route: 058
     Dates: start: 202405
  2. UPTRAVI [Suspect]
     Active Substance: SELEXIPAG
  3. OPSUMIT [Concomitant]
     Active Substance: MACITENTAN

REACTIONS (1)
  - Cerebrovascular accident [None]
